FAERS Safety Report 21979109 (Version 1)
Quarter: 2023Q1

REPORT INFORMATION
  Report Type: Spontaneous
  Country: US (occurrence: US)
  Receive Date: 20230210
  Receipt Date: 20230210
  Transmission Date: 20230418
  Serious: No
  Sender: FDA-Public Use
  Company Number: US-PFIZER INC-202300059168

PATIENT
  Age: 68 Year
  Sex: Female
  Weight: 65.77 kg

DRUGS (9)
  1. XELJANZ XR [Suspect]
     Active Substance: TOFACITINIB CITRATE
     Indication: Rheumatoid arthritis
     Dosage: 11 MG, 1X/DAY IN THE MORNING WITH FOOD
     Route: 048
     Dates: start: 202301
  2. MELOXICAM [Concomitant]
     Active Substance: MELOXICAM
     Dosage: UNK UNK, 1X/DAY (IN THE AM )
  3. VITAMINS NOS [Concomitant]
     Active Substance: VITAMINS
     Dosage: UNK UNK, 1X/DAY (IN THE AM)
  4. STOOL SOFTENER (DOCUSATE) [Concomitant]
     Active Substance: DOCUSATE
     Dosage: UNK UNK, 1X/DAY (IN THE AM)
  5. SYNTHROID [Concomitant]
     Active Substance: LEVOTHYROXINE SODIUM
     Indication: Hormone replacement therapy
     Dosage: 100 MG FIRST THING IN THE MORNING
  6. TRAZODONE [Concomitant]
     Active Substance: TRAZODONE HYDROCHLORIDE
     Dosage: 150 MG IN THE EVENING
  7. LISINOPRIL [Concomitant]
     Active Substance: LISINOPRIL
     Dosage: 10 MG IN THE EVENING
  8. PLAQUENIL [Concomitant]
     Active Substance: HYDROXYCHLOROQUINE SULFATE
     Dosage: 200 MG AT NIGHT
  9. LUNESTA [Concomitant]
     Active Substance: ESZOPICLONE
     Indication: Sleep disorder
     Dosage: 3 MG

REACTIONS (2)
  - Irritable bowel syndrome [Unknown]
  - Headache [Unknown]

NARRATIVE: CASE EVENT DATE: 20230101
